FAERS Safety Report 11185206 (Version 1)
Quarter: 2015Q2

REPORT INFORMATION
  Report Type: Spontaneous
  Country: US (occurrence: None)
  Receive Date: 20150611
  Receipt Date: 20150611
  Transmission Date: 20150821
  Serious: No
  Sender: FDA-Public Use
  Company Number: None

PATIENT
  Age: 24 Year
  Sex: Female
  Weight: 58.97 kg

DRUGS (3)
  1. ZOLOFT [Concomitant]
     Active Substance: SERTRALINE HYDROCHLORIDE
  2. MONODOX [Suspect]
     Active Substance: DOXYCYCLINE
     Indication: ACNE
     Dosage: 2 PILLS
     Route: 048
     Dates: start: 20150607, end: 20150610
  3. AVIAN [Concomitant]

REACTIONS (2)
  - Chest pain [None]
  - Dysphagia [None]

NARRATIVE: CASE EVENT DATE: 20150610
